FAERS Safety Report 11904550 (Version 1)
Quarter: 2016Q1

REPORT INFORMATION
  Report Type: Spontaneous
  Country: US (occurrence: US)
  Receive Date: 20160108
  Receipt Date: 20160108
  Transmission Date: 20160526
  Serious: No
  Sender: FDA-Public Use
  Company Number: US-ROCHE-1562178

PATIENT
  Age: 51 Year
  Sex: Female

DRUGS (2)
  1. ALTEPLASE [Suspect]
     Active Substance: ALTEPLASE
     Indication: SUPERIOR SAGITTAL SINUS THROMBOSIS
     Route: 042
  2. HEPARIN [Concomitant]
     Active Substance: HEPARIN SODIUM
     Indication: SUPERIOR SAGITTAL SINUS THROMBOSIS
     Route: 050

REACTIONS (2)
  - Off label use [Unknown]
  - Drug ineffective [Unknown]
